FAERS Safety Report 25339935 (Version 2)
Quarter: 2025Q2

REPORT INFORMATION
  Report Type: Spontaneous
  Country: US (occurrence: US)
  Receive Date: 20250521
  Receipt Date: 20250529
  Transmission Date: 20250717
  Serious: Yes (Other)
  Sender: RANBAXY
  Company Number: US-SUN PHARMACEUTICAL INDUSTRIES LTD-2025R1-508021

PATIENT
  Age: 58 Year
  Sex: Female

DRUGS (12)
  1. AMANTADINE [Suspect]
     Active Substance: AMANTADINE
     Indication: Hereditary ataxia
     Route: 065
  2. RILUZOLE [Suspect]
     Active Substance: RILUZOLE
     Indication: Product used for unknown indication
     Route: 065
  3. GABAPENTIN [Suspect]
     Active Substance: GABAPENTIN
     Indication: Dystonia
     Route: 065
  4. MIRTAZAPINE [Suspect]
     Active Substance: MIRTAZAPINE
     Indication: Product used for unknown indication
     Route: 065
  5. PANTOPRAZOLE [Suspect]
     Active Substance: PANTOPRAZOLE
     Indication: Product used for unknown indication
     Route: 065
  6. CARBIDOPA\LEVODOPA [Suspect]
     Active Substance: CARBIDOPA\LEVODOPA
     Indication: Product used for unknown indication
     Route: 065
  7. MODAFINIL [Suspect]
     Active Substance: MODAFINIL
     Indication: Product used for unknown indication
     Route: 065
  8. ACETAZOLAMIDE [Suspect]
     Active Substance: ACETAZOLAMIDE
     Indication: Dizziness
     Route: 065
  9. BACLOFEN [Suspect]
     Active Substance: BACLOFEN
     Indication: Dizziness
     Route: 065
  10. COENZYME Q10 [Suspect]
     Active Substance: DIETARY SUPPLEMENT\UBIDECARENONE
     Indication: Product used for unknown indication
     Route: 065
  11. ACETYLLEUCINE [Suspect]
     Active Substance: ACETYLLEUCINE
     Indication: Dizziness
     Route: 065
  12. DALFAMPRIDINE [Suspect]
     Active Substance: DALFAMPRIDINE
     Indication: Dizziness
     Route: 065

REACTIONS (1)
  - Treatment failure [Unknown]
